FAERS Safety Report 17376428 (Version 1)
Quarter: 2020Q1

REPORT INFORMATION
  Report Type: Spontaneous
  Country: US (occurrence: US)
  Receive Date: 20200122
  Receipt Date: 20200122
  Transmission Date: 20200409
  Serious: No
  Sender: FDA-Public Use
  Company Number: None

PATIENT
  Age: 53 Year
  Sex: Female

DRUGS (4)
  1. PIQRAY [Suspect]
     Active Substance: ALPELISIB
     Route: 048
     Dates: start: 201910
  2. EXEMESTANE. [Concomitant]
     Active Substance: EXEMESTANE
  3. LUPRON DEPOT [Concomitant]
     Active Substance: LEUPROLIDE ACETATE
  4. FASLODEX [Concomitant]
     Active Substance: FULVESTRANT

REACTIONS (1)
  - Duplicate therapy error [None]

NARRATIVE: CASE EVENT DATE: 20200122
